FAERS Safety Report 19975589 (Version 8)
Quarter: 2022Q2

REPORT INFORMATION
  Report Type: Report from Study
  Country: GB (occurrence: None)
  Receive Date: 20211021
  Receipt Date: 20220408
  Transmission Date: 20220720
  Serious: Yes (Hospitalization)
  Sender: FDA-Public Use
  Company Number: GB-ROCHE-2922805

PATIENT
  Age: 45 Year
  Sex: Female
  Weight: 64.3 kg

DRUGS (4)
  1. ATEZOLIZUMAB [Suspect]
     Active Substance: ATEZOLIZUMAB
     Indication: Mesothelioma
     Dosage: ON 02/SEP/2021 LAST DOSE PRIOR TO EVENT.
     Route: 041
     Dates: start: 20210401
  2. BEVACIZUMAB [Suspect]
     Active Substance: BEVACIZUMAB
     Indication: Mesothelioma
     Dosage: 02/SEP/2021, LAST DOSE PRIOR TO EVENT.
     Route: 042
     Dates: start: 20210401
  3. DEXAMETHASONE [Concomitant]
     Active Substance: DEXAMETHASONE
     Dosage: 4 MG DAILY FOR 4 DAYS THEN 2 MG DAILY FOR 4.?DUE TO COMPLETE 05/OCT/2021.
     Route: 048
     Dates: start: 20210928, end: 20211001
  4. LANSOPRAZOLE [Concomitant]
     Active Substance: LANSOPRAZOLE
     Dosage: DUE TO COMPLETE 05/OCT/2021.
     Route: 048
     Dates: start: 20210928

REACTIONS (2)
  - Enterovesical fistula [Recovered/Resolved]
  - Small intestinal obstruction [Not Recovered/Not Resolved]

NARRATIVE: CASE EVENT DATE: 20210922
